FAERS Safety Report 4632642-2 (Version None)
Quarter: 2005Q2

REPORT INFORMATION
  Report Type: 
  Country: None (occurrence: None)
  Receive Date: 20050331
  Receipt Date: 20040913
  Transmission Date: 20051028
  Serious: Yes (Other)
  Sender: FDA-Public Use
  Company Number: 200414428BCC

PATIENT
  Age: 25 Year
  Sex: Female
  Weight: 140.6151 kg

DRUGS (2)
  1. ALEVE [Suspect]
     Indication: HEADACHE
     Dosage: 440 MG, ONCE, ORAL
     Route: 048
     Dates: start: 20040912, end: 20040913
  2. ALEVE [Suspect]
     Indication: TOOTHACHE
     Dosage: 440 MG, ONCE, ORAL
     Route: 048
     Dates: start: 20040912, end: 20040913

REACTIONS (5)
  - ABDOMINAL PAIN UPPER [None]
  - HAEMATEMESIS [None]
  - HEADACHE [None]
  - PHARYNGEAL HAEMORRHAGE [None]
  - TOOTHACHE [None]
